FAERS Safety Report 4732804-X (Version None)
Quarter: 2005Q3

REPORT INFORMATION
  Report Type: 
  Country: None (occurrence: None)
  Receive Date: 20050801
  Receipt Date: 20050720
  Transmission Date: 20060218
  Serious: Yes (Other)
  Sender: FDA-Public Use
  Company Number: 2005089882

PATIENT
  Age: 79 Year
  Sex: Male
  Weight: 66 kg

DRUGS (7)
  1. ZOLOFT [Suspect]
     Indication: PAIN
     Dosage: 50 MG (50 MG, 1 IN 1 D); ORAL
     Route: 048
     Dates: start: 20050511, end: 20050613
  2. TRAMADOL HCL [Concomitant]
  3. NORDAZ (NORDAZEPAM) [Concomitant]
  4. BETA  BLOCKING AGENTS [Concomitant]
  5. FENOFIBRATE [Concomitant]
  6. NOVONORM (REPAGLINIDE) [Concomitant]
  7. ALL OTHER THERAPEUTIC PRODUCTS [Concomitant]

REACTIONS (5)
  - BLOOD CHLORIDE INCREASED [None]
  - DEHYDRATION [None]
  - DIARRHOEA [None]
  - DYSENTERY [None]
  - WEIGHT DECREASED [None]
